FAERS Safety Report 11120525 (Version 2)
Quarter: 2015Q3

REPORT INFORMATION
  Report Type: Spontaneous
  Country: US (occurrence: US)
  Receive Date: 20150519
  Receipt Date: 20150709
  Transmission Date: 20151125
  Serious: No
  Sender: FDA-Public Use
  Company Number: US-ASTRAZENECA-2015SE42343

PATIENT
  Age: 34785 Day
  Sex: Female
  Weight: 63.5 kg

DRUGS (11)
  1. MELOXICAN [Concomitant]
     Active Substance: MELOXICAM
     Indication: LIMB DISCOMFORT
     Route: 048
     Dates: start: 2011
  2. VITAMIND [Concomitant]
     Route: 048
  3. FLAX SEED [Concomitant]
     Active Substance: FLAX SEED
     Route: 048
  4. HYDROCHLORDT [Concomitant]
     Indication: DIURETIC THERAPY
     Dosage: 12.5 MG DAILY
     Route: 048
     Dates: start: 2008
  5. THERMATEARS [Concomitant]
     Indication: DRY EYE
     Dosage: AS REQUIRED
     Route: 047
  6. SYMBICORT [Suspect]
     Active Substance: BUDESONIDE\FORMOTEROL FUMARATE DIHYDRATE
     Indication: EMPHYSEMA
     Dosage: 160/4.5 UG, TWO PUFFS, TWO TIMES A DAY
     Route: 055
     Dates: start: 20150330
  7. DIOVAN [Concomitant]
     Active Substance: VALSARTAN
     Indication: BLOOD PRESSURE ABNORMAL
     Route: 048
     Dates: start: 2008
  8. BABY ASPIRIN [Concomitant]
     Active Substance: ASPIRIN
     Indication: LIMB DISCOMFORT
     Route: 048
  9. LORLZEPAM [Concomitant]
     Indication: NERVOUS SYSTEM DISORDER
     Route: 048
  10. TYLENOL [Concomitant]
     Active Substance: ACETAMINOPHEN
     Dosage: AS REQUIRED
     Route: 048
  11. LEVATHYROX [Concomitant]
     Route: 048
     Dates: start: 2008

REACTIONS (2)
  - Drug dose omission [Unknown]
  - Dyspnoea [Unknown]

NARRATIVE: CASE EVENT DATE: 20150330
